FAERS Safety Report 13739431 (Version 2)
Quarter: 2021Q2

REPORT INFORMATION
  Report Type: Spontaneous
  Country: US (occurrence: MX)
  Receive Date: 20170710
  Receipt Date: 20210526
  Transmission Date: 20210716
  Serious: Yes (Other)
  Sender: FDA-Public Use
  Company Number: MX-BIOMARINAP-MX-2017-114635

PATIENT
  Age: 5 Year
  Sex: Female
  Weight: 25.8 kg

DRUGS (1)
  1. ALDURAZYME [Suspect]
     Active Substance: LARONIDASE
     Indication: MUCOPOLYSACCHARIDOSIS I
     Dosage: UNK UNK, QW
     Route: 041

REACTIONS (6)
  - Vomiting [Unknown]
  - Vomiting [Unknown]
  - Gastric infection [Unknown]
  - Diarrhoea [Unknown]
  - Pyrexia [Unknown]
  - Diarrhoea [Recovered/Resolved]

NARRATIVE: CASE EVENT DATE: 2021
